FAERS Safety Report 21476541 (Version 1)
Quarter: 2022Q4

REPORT INFORMATION
  Report Type: Spontaneous
  Country: CN (occurrence: CN)
  Receive Date: 20221019
  Receipt Date: 20221019
  Transmission Date: 20230113
  Serious: Yes (Other)
  Sender: FDA-Public Use
  Company Number: None

PATIENT
  Age: 48 Year
  Sex: Male
  Weight: 68 kg

DRUGS (4)
  1. CYCLOPHOSPHAMIDE [Suspect]
     Active Substance: CYCLOPHOSPHAMIDE
     Indication: Angioimmunoblastic T-cell lymphoma
     Dosage: 1.3 G, QD (ST), DILUTED WITH 0.9% SODIUM CHLORIDE (100 ML), START TIME: 10:13
     Route: 041
     Dates: start: 20220923, end: 20220923
  2. SODIUM CHLORIDE [Suspect]
     Active Substance: SODIUM CHLORIDE
     Indication: Medication dilution
     Dosage: 100 ML, QD (ST), DILUTED WITH CYCLOPHOSPHAMIDE (1.3 G), START TIME: 10:13
     Route: 041
     Dates: start: 20220923, end: 20220923
  3. SODIUM CHLORIDE [Suspect]
     Active Substance: SODIUM CHLORIDE
     Dosage: 20 ML, QD (ST), DILUTED IN VINCRISTINE (1.4 MG), START TIME 10:13
     Route: 042
     Dates: start: 20220923, end: 20220923
  4. VINCRISTINE SULFATE [Suspect]
     Active Substance: VINCRISTINE SULFATE
     Indication: Angioimmunoblastic T-cell lymphoma
     Dosage: START TIME: 10:13, 1.4 MG, QD (ST), DILUTED WITH SODIUM CHLORIDE (20 ML)
     Route: 042
     Dates: start: 20220923, end: 20220923

REACTIONS (2)
  - Myelosuppression [Recovering/Resolving]
  - Full blood count decreased [Recovering/Resolving]

NARRATIVE: CASE EVENT DATE: 20221002
